FAERS Safety Report 5056958-3 (Version None)
Quarter: 2006Q2

REPORT INFORMATION
  Report Type: 
  Country: None (occurrence: None)
  Receive Date: 20060621
  Receipt Date: 20060531
  Transmission Date: 20061013
  Serious: Yes (Other)
  Sender: FDA-Public Use
  Company Number: 1-13918906

PATIENT
  Age: 15 Year
  Sex: Female

DRUGS (5)
  1. ZONISAMIDE [Suspect]
     Indication: CONVULSION
     Dosage: 300 MG DAILY AT BEDTIME, ORAL
     Route: 048
     Dates: start: 20060131, end: 20060222
  2. ZONISAMIDE [Suspect]
     Indication: CONVULSION
     Dosage: 300 MG QD, INCR. TO 400 MG QD, ORAL
     Route: 048
     Dates: start: 20060222, end: 20060418
  3. NECON [Concomitant]
  4. KEPPRA [Concomitant]
  5. DIASTAT [Concomitant]

REACTIONS (1)
  - CONVULSION [None]
